FAERS Safety Report 6992473-5 (Version None)
Quarter: 2010Q3

REPORT INFORMATION
  Report Type: 
  Country: None (occurrence: None)
  Receive Date: 20100917
  Receipt Date: 20100913
  Transmission Date: 20110219
  Serious: Yes (Death, Other)
  Sender: FDA-Public Use
  Company Number: PHHY2010IT60119

PATIENT
  Age: 59 Year
  Sex: Male

DRUGS (3)
  1. CYCLOSPORINE [Suspect]
     Indication: RENAL AND PANCREAS TRANSPLANT
  2. STEROIDS NOS [Suspect]
     Indication: RENAL AND PANCREAS TRANSPLANT
  3. AZATHIOPRINE [Suspect]
     Indication: RENAL AND PANCREAS TRANSPLANT

REACTIONS (8)
  - CYTOMEGALOVIRUS INFECTION [None]
  - KIDNEY TRANSPLANT REJECTION [None]
  - LASER THERAPY [None]
  - METASTASES TO LYMPH NODES [None]
  - ORAL CAVITY NEOPLASM SURGERY [None]
  - RADIOTHERAPY [None]
  - RENAL FAILURE [None]
  - SQUAMOUS CELL CARCINOMA [None]
